FAERS Safety Report 5513831-1 (Version None)
Quarter: 2007Q4

REPORT INFORMATION
  Report Type: 
  Country: None (occurrence: None)
  Receive Date: 20071113
  Receipt Date: 20071107
  Transmission Date: 20080405
  Serious: Yes (Hospitalization, Disabling, Other)
  Sender: FDA-Public Use
  Company Number: US-ELI_LILLY_AND_COMPANY-US200704005210

PATIENT
  Sex: Female
  Weight: 52.608 kg

DRUGS (20)
  1. ZYPREXA [Suspect]
     Indication: DEPRESSION
     Dosage: 5 MG, EACH EVENING
     Dates: start: 19980401, end: 20040601
  2. ZYPREXA [Suspect]
     Dosage: 10 MG, EACH EVENING
  3. ZYPREXA [Suspect]
     Dosage: 15 MG, EACH EVENING
  4. ZYPREXA [Suspect]
     Dosage: 20 MG, EACH EVENING
  5. ZYPREXA [Suspect]
     Dosage: 25 MG, EACH EVENING
  6. ZYPREXA [Suspect]
     Dosage: 30 MG, EACH EVENING
     Dates: start: 20020507
  7. SEROQUEL [Concomitant]
     Dates: start: 20040601
  8. REMERON [Concomitant]
     Dosage: 15 MG, EACH EVENING
     Dates: end: 20020507
  9. REMERON [Concomitant]
     Dosage: 30 MG, EACH EVENING
     Dates: start: 20020418
  10. EFFEXOR [Concomitant]
     Dosage: 150 MG, EACH MORNING
     Dates: end: 20030913
  11. EFFEXOR [Concomitant]
     Dosage: 75 MG, EACH EVENING
  12. DALMANE [Concomitant]
     Indication: INSOMNIA
     Dosage: 30 MG, EACH EVENING
  13. TEMAZEPAM [Concomitant]
     Dosage: 15 MG, UNK
  14. TRAZODIL [Concomitant]
  15. KLONOPIN [Concomitant]
  16. PRILOSEC [Concomitant]
  17. PAXIL [Concomitant]
     Dosage: 20 MG, DAILY (1/D)
  18. HALOPERIDOL [Concomitant]
     Dates: end: 20010802
  19. THEOPHYLLINE [Concomitant]
     Dosage: 200 MG, 2/D
  20. ALBUTEROL [Concomitant]
     Dosage: 1 D/F, 4/D
     Route: 055

REACTIONS (17)
  - BLOOD PRESSURE INCREASED [None]
  - CARBOXYHAEMOGLOBIN INCREASED [None]
  - COMA [None]
  - DYSARTHRIA [None]
  - DYSTONIA [None]
  - INTENTIONAL OVERDOSE [None]
  - LOSS OF CONSCIOUSNESS [None]
  - PARKINSONISM [None]
  - PUPIL FIXED [None]
  - RESPIRATORY DEPRESSION [None]
  - RESPIRATORY FAILURE [None]
  - SEDATION [None]
  - SUICIDE ATTEMPT [None]
  - TARDIVE DYSKINESIA [None]
  - TREMOR [None]
  - UNRESPONSIVE TO STIMULI [None]
  - URINE ANALYSIS ABNORMAL [None]
